FAERS Safety Report 21007956 (Version 1)
Quarter: 2022Q2

REPORT INFORMATION
  Report Type: Spontaneous
  Country: JP (occurrence: JP)
  Receive Date: 20220627
  Receipt Date: 20220627
  Transmission Date: 20220721
  Serious: Yes (Hospitalization)
  Sender: FDA-Public Use
  Company Number: JP-TAKEDA-2022TJP059480

PATIENT
  Age: 56 Year
  Sex: Female

DRUGS (1)
  1. CABOMETYX [Suspect]
     Active Substance: CABOZANTINIB S-MALATE
     Indication: Renal cell carcinoma
     Dosage: 60 MG
     Route: 048

REACTIONS (5)
  - Alopecia [Unknown]
  - Malaise [Unknown]
  - Liver disorder [Unknown]
  - Palmar-plantar erythrodysaesthesia syndrome [Unknown]
  - Hypertension [Unknown]
